FAERS Safety Report 12412832 (Version 1)
Quarter: 2016Q2

REPORT INFORMATION
  Report Type: Spontaneous
  Country: US (occurrence: US)
  Receive Date: 20160527
  Receipt Date: 20160527
  Transmission Date: 20160815
  Serious: Yes (Hospitalization, Other)
  Sender: FDA-Public Use
  Company Number: US-MDT-ADR-2016-00087

PATIENT
  Age: 79 Year
  Sex: Female

DRUGS (12)
  1. PREMARIN [Suspect]
     Active Substance: ESTROGENS, CONJUGATED
     Dosage: 0.625
  2. DILTIAZEM [Suspect]
     Active Substance: DILTIAZEM
     Dosage: 120
  3. COMPOUNDED BACLOFEN [Suspect]
     Active Substance: BACLOFEN
     Dosage: 199.84 MG/DAY
     Route: 037
     Dates: start: 20150925
  4. REGLAN [Suspect]
     Active Substance: METOCLOPRAMIDE HYDROCHLORIDE
     Dosage: 10 Q 6
  5. OXYBUTYNIN [Suspect]
     Active Substance: OXYBUTYNIN
     Dosage: 5
  6. VENLAFAXINE [Suspect]
     Active Substance: VENLAFAXINE HYDROCHLORIDE
     Dosage: 150
  7. XARELTO [Suspect]
     Active Substance: RIVAROXABAN
     Dosage: 20
  8. NITROGLYCERIN. [Suspect]
     Active Substance: NITROGLYCERIN
  9. CLONIDINE. [Suspect]
     Active Substance: CLONIDINE
     Dosage: 339.72 MCG/DAY
     Route: 037
     Dates: start: 20150925
  10. ASPIRIN. [Suspect]
     Active Substance: ASPIRIN
     Dosage: 81
  11. METFORMIN [Suspect]
     Active Substance: METFORMIN HYDROCHLORIDE
     Dosage: 1000
  12. FENTANYL. [Suspect]
     Active Substance: FENTANYL
     Dosage: 2.7977 MG/DAY
     Route: 037
     Dates: start: 20150925

REACTIONS (8)
  - Speech disorder [Unknown]
  - Urine analysis abnormal [Unknown]
  - Urinary tract infection [Unknown]
  - Mental status changes [Unknown]
  - White blood cell count increased [Unknown]
  - Confusional state [Unknown]
  - Haemoglobin decreased [Unknown]
  - Haematocrit decreased [Unknown]

NARRATIVE: CASE EVENT DATE: 20160106
